FAERS Safety Report 21675759 (Version 1)
Quarter: 2022Q4

REPORT INFORMATION
  Report Type: Spontaneous
  Country: MX (occurrence: None)
  Receive Date: 20221202
  Receipt Date: 20221202
  Transmission Date: 20230113
  Serious: Yes (Hospitalization)
  Sender: FDA-Public Use
  Company Number: None

PATIENT
  Age: 13 Year
  Sex: Male
  Weight: 54 kg

DRUGS (5)
  1. METHOTREXATE [Suspect]
     Active Substance: METHOTREXATE
     Indication: Juvenile idiopathic arthritis
     Dosage: OTHER QUANTITY : 3 TABLET(S);?FREQUENCY : DAILY;?
     Route: 048
     Dates: start: 20211101
  2. PREDNISONE [Suspect]
     Active Substance: PREDNISONE
  3. FOLIC ACID [Suspect]
     Active Substance: FOLIC ACID
  4. LEFLUNOMIDE [Suspect]
     Active Substance: LEFLUNOMIDE
  5. ACETAMINOPHEN [Suspect]
     Active Substance: ACETAMINOPHEN

REACTIONS (1)
  - Seizure [None]

NARRATIVE: CASE EVENT DATE: 20220816
